FAERS Safety Report 9066261 (Version 1)
Quarter: 2013Q1

REPORT INFORMATION
  Report Type: Spontaneous
  Country: US (occurrence: US)
  Receive Date: 20130131
  Receipt Date: 20130131
  Transmission Date: 20140127
  Serious: No
  Sender: FDA-Public Use
  Company Number: US-ABBOTT-12P-163-1015745-00

PATIENT
  Age: 28 Year
  Sex: Male

DRUGS (3)
  1. HUMIRA [Suspect]
     Indication: PSORIASIS
  2. BUPROBAN [Concomitant]
     Indication: EX-TOBACCO USER
  3. LORAZEPAM [Concomitant]
     Indication: ANXIETY
     Dosage: 1MG DAILY

REACTIONS (2)
  - Depression [Unknown]
  - Rash [Not Recovered/Not Resolved]
